FAERS Safety Report 4789845-6 (Version None)
Quarter: 2005Q4

REPORT INFORMATION
  Report Type: 
  Country: None (occurrence: None)
  Receive Date: 20051006
  Receipt Date: 20050922
  Transmission Date: 20060501
  Serious: Yes (Other)
  Sender: FDA-Public Use
  Company Number: GB-GILEAD-2005-0008720

PATIENT
  Age: 47 Year
  Sex: Male

DRUGS (5)
  1. VIREAD [Suspect]
     Indication: ACQUIRED IMMUNODEFICIENCY SYNDROME
     Dates: start: 20020201, end: 20040301
  2. DIDANOSINE [Concomitant]
     Indication: ACQUIRED IMMUNODEFICIENCY SYNDROME
     Dates: start: 20020201, end: 20040301
  3. LAMIVUDINE [Concomitant]
     Indication: ACQUIRED IMMUNODEFICIENCY SYNDROME
     Dates: start: 20020201, end: 20040301
  4. LOPINAVIR W/RITONAVIR [Concomitant]
     Indication: ACQUIRED IMMUNODEFICIENCY SYNDROME
     Dates: start: 20020201, end: 20040301
  5. IMIDAPRIL [Concomitant]
     Indication: LIPODYSTROPHY ACQUIRED
     Dates: start: 20021201

REACTIONS (14)
  - BLOOD ALKALINE PHOSPHATASE INCREASED [None]
  - BLOOD CREATININE INCREASED [None]
  - BLOOD PHOSPHORUS DECREASED [None]
  - BLOOD POTASSIUM DECREASED [None]
  - DRUG INTERACTION [None]
  - GLUCOSE TOLERANCE IMPAIRED [None]
  - GLYCOSURIA [None]
  - LIPODYSTROPHY ACQUIRED [None]
  - OSTEOMALACIA [None]
  - OSTEOPENIA [None]
  - PITUITARY TUMOUR BENIGN [None]
  - PROTEINURIA [None]
  - RENAL FAILURE [None]
  - SECONDARY HYPOGONADISM [None]
